FAERS Safety Report 8457746-8 (Version None)
Quarter: 2012Q2

REPORT INFORMATION
  Report Type: 
  Country: None (occurrence: None)
  Receive Date: 20120618
  Receipt Date: 20120618
  Transmission Date: 20120825
  Serious: Yes (Life-Threatening, Hospitalization, Other)
  Sender: FDA-Public Use
  Company Number: None

PATIENT
  Age: 39 Year
  Sex: Female
  Weight: 78.9259 kg

DRUGS (1)
  1. LAMOTRIGINE [Suspect]
     Indication: BIPOLAR DISORDER
     Dosage: 200 MG 1 PER DAY PO
     Route: 048
     Dates: start: 20111130, end: 20120502

REACTIONS (14)
  - LOSS OF CONSCIOUSNESS [None]
  - HYPERAMMONAEMIA [None]
  - METABOLIC ACIDOSIS [None]
  - COGNITIVE DISORDER [None]
  - EATING DISORDER [None]
  - ABNORMAL BEHAVIOUR [None]
  - WEIGHT DECREASED [None]
  - MEMORY IMPAIRMENT [None]
  - HYPOKALAEMIA [None]
  - ENCEPHALOPATHY [None]
  - INSOMNIA [None]
  - DEHYDRATION [None]
  - RESPIRATORY FAILURE [None]
  - DISTURBANCE IN ATTENTION [None]
